FAERS Safety Report 10504639 (Version 4)
Quarter: 2015Q1

REPORT INFORMATION
  Report Type: Spontaneous
  Country: DE (occurrence: DE)
  Receive Date: 20141008
  Receipt Date: 20150204
  Transmission Date: 20150720
  Serious: Yes (Other)
  Sender: FDA-Public Use
  Company Number: DE-PFIZER INC-2014272269

PATIENT
  Age: 34 Year
  Sex: Female
  Weight: 94 kg

DRUGS (5)
  1. CITALOPRAM [Concomitant]
     Active Substance: CITALOPRAM HYDROBROMIDE
  2. DEHYDRO SANOL TRI [Concomitant]
  3. OMEPRAZOL [Concomitant]
     Active Substance: OMEPRAZOLE
  4. LAMOTRIGINE. [Concomitant]
     Active Substance: LAMOTRIGINE
  5. DEPO-CLINOVIR [Suspect]
     Active Substance: MEDROXYPROGESTERONE ACETATE
     Indication: CONTRACEPTION
     Dosage: 1 DF (1 INJECTION), EVERY 3 MONTHS
     Route: 030
     Dates: start: 2004, end: 2014

REACTIONS (1)
  - Benign intracranial hypertension [Not Recovered/Not Resolved]

NARRATIVE: CASE EVENT DATE: 20140904
